FAERS Safety Report 6769104-2 (Version None)
Quarter: 2010Q2

REPORT INFORMATION
  Report Type: 
  Country: None (occurrence: None)
  Receive Date: 20100603
  Receipt Date: 20100601
  Transmission Date: 20101027
  Serious: Yes (Death, Other)
  Sender: FDA-Public Use
  Company Number: 2007SP016265

PATIENT
  Age: 48 Year
  Sex: Female
  Weight: 45 kg

DRUGS (5)
  1. TEMODAL [Suspect]
     Indication: GLIOBLASTOMA MULTIFORME
     Dosage: 150 MG/M2; QD; PO, 75 MG/M2; QD; PO
     Route: 048
     Dates: start: 20061023, end: 20061027
  2. TEMODAL [Suspect]
     Indication: GLIOBLASTOMA MULTIFORME
     Dosage: 150 MG/M2; QD; PO, 75 MG/M2; QD; PO
     Route: 048
     Dates: start: 20061127, end: 20061201
  3. SELENICA-R [Concomitant]
  4. SELBEX [Concomitant]
  5. LENDORMIN [Concomitant]

REACTIONS (3)
  - DISEASE PROGRESSION [None]
  - GLIOBLASTOMA MULTIFORME [None]
  - HEPATIC FUNCTION ABNORMAL [None]
